FAERS Safety Report 5492316-5 (Version None)
Quarter: 2007Q4

REPORT INFORMATION
  Report Type: 
  Country: None (occurrence: None)
  Receive Date: 20071015
  Receipt Date: 20070725
  Transmission Date: 20080405
  Serious: No
  Sender: FDA-Public Use
  Company Number: 2007SP002637

PATIENT
  Age: 46 Year
  Sex: Female
  Weight: 90.7194 kg

DRUGS (4)
  1. LUNESTA [Suspect]
     Indication: INSOMNIA
     Dosage: 3 MG; PRN; ORAL
     Route: 048
     Dates: start: 20070101, end: 20070701
  2. PROZAC [Concomitant]
  3. WELLBUTRIN [Concomitant]
  4. ATORVASTATIN [Concomitant]

REACTIONS (3)
  - ANXIETY [None]
  - DRUG WITHDRAWAL SYNDROME [None]
  - GAMMA-GLUTAMYLTRANSFERASE INCREASED [None]
